FAERS Safety Report 12222726 (Version 5)
Quarter: 2016Q2

REPORT INFORMATION
  Report Type: Spontaneous
  Country: GB (occurrence: GB)
  Receive Date: 20160330
  Receipt Date: 20160630
  Transmission Date: 20160815
  Serious: Yes (Hospitalization)
  Sender: FDA-Public Use
  Company Number: GB-FRESENIUS KABI-FK201601539

PATIENT
  Age: 55 Year
  Sex: Male

DRUGS (10)
  1. ZALTRAP [Suspect]
     Active Substance: ZIV-AFLIBERCEPT
     Dates: start: 20160120, end: 20160120
  2. ZALTRAP [Suspect]
     Active Substance: ZIV-AFLIBERCEPT
     Dates: start: 20160525, end: 20160525
  3. FLUOROURACIL. [Suspect]
     Active Substance: FLUOROURACIL
     Route: 041
  4. NEULASTA [Suspect]
     Active Substance: PEGFILGRASTIM
     Indication: PRODUCT USED FOR UNKNOWN INDICATION
  5. IRINOTECAN (MANUFACTURER UNKNOWN) [Suspect]
     Active Substance: IRINOTECAN
     Indication: PRODUCT USED FOR UNKNOWN INDICATION
     Route: 041
  6. ZALTRAP [Suspect]
     Active Substance: ZIV-AFLIBERCEPT
     Dates: start: 20160203, end: 20160203
  7. FLUOROURACIL. [Suspect]
     Active Substance: FLUOROURACIL
     Indication: PRODUCT USED FOR UNKNOWN INDICATION
     Route: 040
  8. LEUCOVORIN. [Suspect]
     Active Substance: LEUCOVORIN
     Indication: PRODUCT USED FOR UNKNOWN INDICATION
     Route: 041
  9. ZALTRAP [Suspect]
     Active Substance: ZIV-AFLIBERCEPT
     Indication: PRODUCT USED FOR UNKNOWN INDICATION
     Dates: start: 20160302, end: 20160302
  10. ZALTRAP [Suspect]
     Active Substance: ZIV-AFLIBERCEPT
     Dates: start: 20160511, end: 20160511

REACTIONS (17)
  - Arthralgia [Unknown]
  - Lethargy [Unknown]
  - Oral pain [Unknown]
  - Diarrhoea [Recovered/Resolved]
  - Lip dry [Unknown]
  - Dyspepsia [Unknown]
  - Abdominal pain upper [Unknown]
  - Fatigue [Not Recovered/Not Resolved]
  - Gingival pain [Unknown]
  - Pneumonia [Unknown]
  - Alopecia [Unknown]
  - Oral herpes [Unknown]
  - Dysgeusia [Unknown]
  - Paraesthesia oral [Unknown]
  - Paraesthesia mucosal [Unknown]
  - Neuropathy peripheral [Unknown]
  - Dry skin [Unknown]
